FAERS Safety Report 11043062 (Version 1)
Quarter: 2015Q2

REPORT INFORMATION
  Report Type: Spontaneous
  Country: US (occurrence: None)
  Receive Date: 20150416
  Receipt Date: 20150416
  Transmission Date: 20150821
  Serious: Yes (Hospitalization)
  Sender: FDA-Public Use
  Company Number: None

PATIENT
  Age: 87 Year
  Sex: Female
  Weight: 52.9 kg

DRUGS (1)
  1. WARFARIN [Suspect]
     Active Substance: WARFARIN
     Indication: ATRIAL FIBRILLATION
     Dosage: 2 MG OTHER PO
     Route: 048
     Dates: start: 20141119, end: 20141220

REACTIONS (12)
  - Haematochezia [None]
  - Lower gastrointestinal haemorrhage [None]
  - Ecchymosis [None]
  - Rectal haemorrhage [None]
  - Constipation [None]
  - Hypertension [None]
  - Haemoglobin decreased [None]
  - Fall [None]
  - International normalised ratio increased [None]
  - Thrombosis [None]
  - Diverticulitis intestinal haemorrhagic [None]
  - Haemorrhoidal haemorrhage [None]

NARRATIVE: CASE EVENT DATE: 20141220
